FAERS Safety Report 7113477-8 (Version None)
Quarter: 2010Q4

REPORT INFORMATION
  Report Type: 
  Country: None (occurrence: None)
  Receive Date: 20101119
  Receipt Date: 20101110
  Transmission Date: 20110411
  Serious: Yes (Other)
  Sender: FDA-Public Use
  Company Number: JP-SANOFI-AVENTIS-2010SA065393

PATIENT
  Age: 66 Year
  Sex: Male

DRUGS (4)
  1. MYSLEE [Suspect]
     Indication: INSOMNIA
     Route: 048
     Dates: start: 20100821, end: 20100821
  2. TENORMIN [Concomitant]
     Route: 048
     Dates: start: 20060808
  3. SALOBEL [Concomitant]
     Route: 048
     Dates: start: 20060808
  4. URSO 250 [Concomitant]
     Route: 048
     Dates: start: 20060808

REACTIONS (2)
  - DEPRESSED LEVEL OF CONSCIOUSNESS [None]
  - VOMITING [None]
